FAERS Safety Report 8909140 (Version 2)
Quarter: 2012Q4

REPORT INFORMATION
  Report Type: 
  Country: BR (occurrence: BR)
  Receive Date: 20121114
  Receipt Date: 20121207
  Transmission Date: 20130627
  Serious: Yes (Other)
  Sender: FDA-Public Use
  Company Number: BR-PFIZER INC-2012280826

PATIENT
  Age: 75 Year
  Sex: Female
  Weight: 86 kg

DRUGS (5)
  1. LIPITOR [Suspect]
     Indication: CHOLESTEROL
     Dosage: 20 mg, 1x/day
     Dates: start: 20090416
  2. LORAZEPAM [Suspect]
     Dosage: 1 mg, 1x/day
     Dates: start: 1992
  3. ZOLOFT [Suspect]
     Dosage: 50 mg, 1x/day
     Dates: start: 20101104
  4. DIOVAN [Concomitant]
     Indication: BLOOD PRESSURE INCREASED
     Dosage: 1 DF, 2x/day
  5. ADDERA D3 VITAMIN [Concomitant]
     Indication: VITAMIN D DECREASED
     Dosage: 1 DF, 1x/day

REACTIONS (3)
  - Glaucoma [Unknown]
  - Cataract [Unknown]
  - Cataract [Unknown]
